FAERS Safety Report 18386181 (Version 2)
Quarter: 2020Q4

REPORT INFORMATION
  Report Type: Spontaneous
  Country: US (occurrence: US)
  Receive Date: 20201015
  Receipt Date: 20201102
  Transmission Date: 20210114
  Serious: Yes (Other)
  Sender: FDA-Public Use
  Company Number: US-PFIZER INC-2020399270

PATIENT
  Age: 64 Year
  Sex: Male
  Weight: 115.19 kg

DRUGS (2)
  1. INLYTA [Suspect]
     Active Substance: AXITINIB
     Dosage: 5 MG, 1X/DAY
     Dates: start: 20201009
  2. INLYTA [Suspect]
     Active Substance: AXITINIB
     Indication: RENAL CANCER
     Dosage: 5 MG, 2X/DAY
     Route: 048
     Dates: start: 20200818

REACTIONS (7)
  - Stomatitis [Unknown]
  - Fatigue [Unknown]
  - Hypoaesthesia [Unknown]
  - Dysphonia [Unknown]
  - Pain [Unknown]
  - Neuropathy peripheral [Unknown]
  - Thyroid disorder [Unknown]
